FAERS Safety Report 21982201 (Version 1)
Quarter: 2023Q1

REPORT INFORMATION
  Report Type: Spontaneous
  Country: BR (occurrence: None)
  Receive Date: 20230213
  Receipt Date: 20230213
  Transmission Date: 20230418
  Serious: Yes (Other)
  Sender: FDA-Public Use
  Company Number: BR-Merck Healthcare KGaA-9382232

PATIENT
  Sex: Female
  Weight: 70 kg

DRUGS (8)
  1. METFORMIN HYDROCHLORIDE [Suspect]
     Active Substance: METFORMIN HYDROCHLORIDE
     Indication: Diabetes mellitus
     Dosage: 500 (UNSPECIFIED UNITS)
     Route: 048
  2. JANUVIA [Suspect]
     Active Substance: SITAGLIPTIN PHOSPHATE
     Indication: Diabetes mellitus
     Route: 048
     Dates: start: 2018
  3. GLICLAZIDE [Suspect]
     Active Substance: GLICLAZIDE
     Indication: Diabetes mellitus
  4. LOSARTAN [Concomitant]
     Active Substance: LOSARTAN
     Indication: Blood pressure increased
     Dosage: 50 MX IN THE MORNING
  5. ERGOCALCIFEROL [Concomitant]
     Active Substance: ERGOCALCIFEROL
     Indication: Product used for unknown indication
  6. ZINC [Concomitant]
     Active Substance: ZINC
     Indication: Product used for unknown indication
  7. SUPRA D [Concomitant]
     Indication: Bone disorder
  8. COVID-19 VACCINE [Concomitant]
     Indication: COVID-19 immunisation

REACTIONS (24)
  - Pneumonia [Unknown]
  - Glaucoma [Unknown]
  - Cataract [Unknown]
  - Urinary tract infection [Not Recovered/Not Resolved]
  - Blood glucose increased [Not Recovered/Not Resolved]
  - Malaise [Unknown]
  - Presyncope [Unknown]
  - Nervousness [Unknown]
  - Asthma [Unknown]
  - Influenza [Unknown]
  - General physical health deterioration [Unknown]
  - Blood glucose decreased [Unknown]
  - Blood pressure increased [Unknown]
  - Purpura senile [Unknown]
  - Chloasma [Unknown]
  - Dermatitis allergic [Unknown]
  - Fall [Unknown]
  - Ligament sprain [Unknown]
  - COVID-19 [Unknown]
  - Weight increased [Unknown]
  - Musculoskeletal disorder [Unknown]
  - Kyphosis [Unknown]
  - Pain in extremity [Unknown]
  - Gait disturbance [Unknown]
